FAERS Safety Report 9509849 (Version 1)
Quarter: 2013Q3

REPORT INFORMATION
  Report Type: Spontaneous
  Country: GB (occurrence: GB)
  Receive Date: 20130909
  Receipt Date: 20130909
  Transmission Date: 20140515
  Serious: Yes (Other)
  Sender: FDA-Public Use
  Company Number: GB-TEVA-430007ISR

PATIENT
  Age: 19 Year
  Sex: Female
  Weight: 50.34 kg

DRUGS (2)
  1. ONDANSETRON [Suspect]
     Indication: PROCEDURAL NAUSEA
     Route: 042
     Dates: start: 20130819, end: 20130819
  2. TRAMADOL [Concomitant]
     Route: 042

REACTIONS (5)
  - Muscle rigidity [Recovered/Resolved]
  - Sensory loss [Recovering/Resolving]
  - Paraesthesia [Recovering/Resolving]
  - Dystonia [Recovered/Resolved]
  - Paralysis [Recovering/Resolving]
